FAERS Safety Report 16645307 (Version 1)
Quarter: 2019Q3

REPORT INFORMATION
  Report Type: Spontaneous
  Country: US (occurrence: US)
  Receive Date: 20190729
  Receipt Date: 20190729
  Transmission Date: 20191004
  Serious: No
  Sender: FDA-Public Use
  Company Number: US-ELI_LILLY_AND_COMPANY-US201907011257

PATIENT

DRUGS (1)
  1. TALTZ [Suspect]
     Active Substance: IXEKIZUMAB
     Indication: PSORIASIS
     Dosage: 80 MG, UNKNOWN
     Route: 058
     Dates: start: 20190521

REACTIONS (6)
  - Ear congestion [Unknown]
  - Fatigue [Unknown]
  - Insomnia [Unknown]
  - Nasal congestion [Unknown]
  - Rhinorrhoea [Unknown]
  - Sinusitis [Unknown]

NARRATIVE: CASE EVENT DATE: 20190521
